FAERS Safety Report 4354035-8 (Version None)
Quarter: 2004Q2

REPORT INFORMATION
  Report Type: 
  Country: None (occurrence: None)
  Receive Date: 20040506
  Receipt Date: 20031121
  Transmission Date: 20050107
  Serious: No
  Sender: FDA-Public Use
  Company Number: US-GLAXOSMITHKLINE-A0440840A

PATIENT
  Age: 2 Year
  Sex: Male

DRUGS (1)
  1. AMOXICILLIN [Suspect]
     Indication: ILL-DEFINED DISORDER
     Dosage: 250MG THREE TIMES PER DAY
     Route: 048

REACTIONS (1)
  - TOOTH DISCOLOURATION [None]
